FAERS Safety Report 25951848 (Version 2)
Quarter: 2025Q4

REPORT INFORMATION
  Report Type: Spontaneous
  Country: US (occurrence: US)
  Receive Date: 20251023
  Receipt Date: 20251110
  Transmission Date: 20260118
  Serious: Yes (Disabling, Other)
  Sender: AMGEN
  Company Number: US-AMGEN-USASP2025204690

PATIENT
  Age: 61 Year
  Sex: Male

DRUGS (41)
  1. REPATHA [Suspect]
     Active Substance: EVOLOCUMAB
     Indication: Blood cholesterol increased
     Dosage: 140 MILLIGRAM, Q2WK
     Route: 065
     Dates: start: 202506
  2. REPATHA [Suspect]
     Active Substance: EVOLOCUMAB
     Indication: Benign prostatic hyperplasia
  3. REPATHA [Suspect]
     Active Substance: EVOLOCUMAB
     Indication: Headache
  4. REPATHA [Suspect]
     Active Substance: EVOLOCUMAB
     Indication: Tremor
  5. REPATHA [Suspect]
     Active Substance: EVOLOCUMAB
     Indication: Blood pressure abnormal
  6. REPATHA [Suspect]
     Active Substance: EVOLOCUMAB
     Indication: Arthralgia
  7. REPATHA [Suspect]
     Active Substance: EVOLOCUMAB
     Indication: Neuropathy peripheral
  8. REPATHA [Suspect]
     Active Substance: EVOLOCUMAB
     Indication: Pulmonary fibrosis
  9. REPATHA [Suspect]
     Active Substance: EVOLOCUMAB
     Indication: Lung disorder
  10. REPATHA [Suspect]
     Active Substance: EVOLOCUMAB
     Indication: Bone disorder
  11. REPATHA [Suspect]
     Active Substance: EVOLOCUMAB
     Indication: Autoimmune disorder
  12. REPATHA [Suspect]
     Active Substance: EVOLOCUMAB
     Indication: Arthritis
  13. RITUXIMAB [Suspect]
     Active Substance: RITUXIMAB
     Indication: Arthralgia
     Dosage: 500 MILLILITER, (WAIT TWO WEEKS AND GET A SECOND INFUSION, THEN AFTER THAT SECOND ONE, HAVE TO WAIT
     Route: 065
     Dates: start: 2022
  14. RITUXIMAB [Suspect]
     Active Substance: RITUXIMAB
     Indication: Myalgia
     Dosage: 500 MILLILITER, (WAIT TWO WEEKS AND GET A SECOND INFUSION, THEN AFTER THAT SECOND ONE, HAVE TO WAIT
     Route: 065
  15. RITUXIMAB [Suspect]
     Active Substance: RITUXIMAB
     Dosage: 500 MILLILITER
     Route: 065
     Dates: start: 202509
  16. INDERAL [Concomitant]
     Active Substance: PROPRANOLOL HYDROCHLORIDE
     Indication: Tremor
     Dosage: 20 MILLIGRAM, BID
     Route: 065
     Dates: start: 2024
  17. INDERAL [Concomitant]
     Active Substance: PROPRANOLOL HYDROCHLORIDE
     Dosage: 20 MILLIGRAM
  18. FLOMAX [Concomitant]
     Active Substance: TAMSULOSIN HYDROCHLORIDE
     Indication: Benign prostatic hyperplasia
     Dosage: 0.4 MILLIGRAM
     Route: 065
     Dates: start: 202408
  19. FLOMAX [Concomitant]
     Active Substance: TAMSULOSIN HYDROCHLORIDE
  20. PREDNISONE [Concomitant]
     Active Substance: PREDNISONE
     Indication: Autoimmune disorder
     Dosage: 60 MILLIGRAM
     Route: 065
     Dates: start: 202304
  21. PREDNISONE [Concomitant]
     Active Substance: PREDNISONE
     Indication: Lung disorder
     Dosage: 5 MILLIGRAM
     Route: 065
  22. PREDNISONE [Concomitant]
     Active Substance: PREDNISONE
     Indication: Muscle disorder
  23. DULOXETINE [Concomitant]
     Active Substance: DULOXETINE
     Indication: Affective disorder
     Dosage: 60 MILLIGRAM
     Route: 065
     Dates: start: 2023
  24. DULOXETINE [Concomitant]
     Active Substance: DULOXETINE
  25. DULOXETINE [Concomitant]
     Active Substance: DULOXETINE
  26. LOSARTAN POTASSIUM [Concomitant]
     Active Substance: LOSARTAN POTASSIUM
     Indication: Blood pressure abnormal
     Dosage: 50 MILLIGRAM
     Route: 065
     Dates: start: 2023
  27. LOSARTAN POTASSIUM [Concomitant]
     Active Substance: LOSARTAN POTASSIUM
  28. LOSARTAN POTASSIUM [Concomitant]
     Active Substance: LOSARTAN POTASSIUM
  29. METHOTREXATE [Concomitant]
     Active Substance: METHOTREXATE
     Indication: Arthritis
     Dosage: 15 MILLIGRAM, QWK (2.5MG, 6 OF TABLETS ONCE A WEEK)
     Route: 065
     Dates: start: 2022
  30. NEURONTIN [Concomitant]
     Active Substance: GABAPENTIN
     Indication: Neuropathy peripheral
     Dosage: 600 MILLIGRAM
     Route: 065
     Dates: start: 2023
  31. NEURONTIN [Concomitant]
     Active Substance: GABAPENTIN
  32. OXYCODONE [Concomitant]
     Active Substance: OXYCODONE
     Indication: Pain
     Dosage: 10 MILLIGRAM
     Route: 065
     Dates: start: 202307
  33. OXYCODONE [Concomitant]
     Active Substance: OXYCODONE
  34. OXYCODONE [Concomitant]
     Active Substance: OXYCODONE
  35. FOLIC ACID [Concomitant]
     Active Substance: FOLIC ACID
     Dosage: 800 MICROGRAM
     Route: 065
     Dates: start: 2022
  36. FOLIC ACID [Concomitant]
     Active Substance: FOLIC ACID
  37. OFEV [Concomitant]
     Active Substance: NINTEDANIB
     Indication: Pulmonary fibrosis
     Dosage: 100 MILLIGRAM, BID
     Route: 065
     Dates: start: 202204
  38. OFEV [Concomitant]
     Active Substance: NINTEDANIB
     Indication: Interstitial lung disease
  39. VITAMIN B12 [Concomitant]
     Active Substance: CYANOCOBALAMIN
     Indication: Vitamin B12 decreased
     Dosage: 1000 MICROGRAM
     Route: 065
     Dates: start: 2022
  40. VITAMIN D3 [Concomitant]
     Active Substance: CHOLECALCIFEROL
     Indication: Bone disorder
     Dosage: 250 MICROGRAM
     Route: 065
     Dates: start: 2022
  41. TYLENOL [Concomitant]
     Active Substance: ACETAMINOPHEN
     Indication: Headache
     Dosage: 500 MILLIGRAM, BID
     Route: 065

REACTIONS (6)
  - Colon cancer [Unknown]
  - Lower respiratory tract infection [Unknown]
  - Idiopathic inflammatory myopathy [Unknown]
  - Injection site pain [Unknown]
  - Device difficult to use [Unknown]
  - Drug dose omission by device [Unknown]

NARRATIVE: CASE EVENT DATE: 20250101
